FAERS Safety Report 18507301 (Version 1)
Quarter: 2020Q4

REPORT INFORMATION
  Report Type: Spontaneous
  Country: US (occurrence: US)
  Receive Date: 20201116
  Receipt Date: 20201116
  Transmission Date: 20210114
  Serious: No
  Sender: FDA-Public Use
  Company Number: None

PATIENT
  Age: 5 Year
  Sex: Male
  Weight: 13.5 kg

DRUGS (5)
  1. EPIDIOLEX [Suspect]
     Active Substance: CANNABIDIOL
     Indication: TONIC CONVULSION
     Route: 048
     Dates: start: 20200726, end: 20201021
  2. CLOBAZAM. [Concomitant]
     Active Substance: CLOBAZAM
  3. BOTOX [Concomitant]
     Active Substance: ONABOTULINUMTOXINA
  4. BACLOFEN. [Concomitant]
     Active Substance: BACLOFEN
  5. EPIDIOLEX [Suspect]
     Active Substance: CANNABIDIOL
     Indication: LENNOX-GASTAUT SYNDROME
     Route: 048
     Dates: start: 20200726, end: 20201021

REACTIONS (2)
  - Muscle spasms [None]
  - Seizure [None]

NARRATIVE: CASE EVENT DATE: 20201112
